FAERS Safety Report 7351425-6 (Version None)
Quarter: 2011Q1

REPORT INFORMATION
  Report Type: 
  Country: None (occurrence: None)
  Receive Date: 20110314
  Receipt Date: 20110310
  Transmission Date: 20110831
  Serious: Yes (Hospitalization, Other)
  Sender: FDA-Public Use
  Company Number: US-ABBOTT-11P-163-0710661-00

PATIENT
  Sex: Female
  Weight: 81.72 kg

DRUGS (5)
  1. MOBIC [Concomitant]
     Indication: RHEUMATOID ARTHRITIS
     Dates: end: 20100901
  2. LISINOPRIL AND HYDROCHLOROTHIAZIDE [Concomitant]
     Indication: HYPERTENSION
     Dosage: 20/25MG DAILY
     Dates: start: 19950101
  3. HUMIRA [Suspect]
     Indication: RHEUMATOID ARTHRITIS
     Dates: start: 20100301, end: 20100901
  4. METHOTREXATE [Concomitant]
     Indication: RHEUMATOID ARTHRITIS
     Dates: end: 20100901
  5. FOSAMAX [Concomitant]
     Indication: OSTEOPOROSIS

REACTIONS (4)
  - WHITE BLOOD CELL COUNT DECREASED [None]
  - PERIARTHRITIS [None]
  - FALL [None]
  - ROTATOR CUFF SYNDROME [None]
